FAERS Safety Report 8621537-5 (Version None)
Quarter: 2012Q3

REPORT INFORMATION
  Report Type: 
  Country: None (occurrence: None)
  Receive Date: 20120824
  Receipt Date: 20120813
  Transmission Date: 20120928
  Serious: Yes (Life-Threatening, Hospitalization)
  Sender: FDA-Public Use
  Company Number: US-009507513-1208USA006123

PATIENT

DRUGS (15)
  1. TICE BCG [Suspect]
     Route: 043
     Dates: start: 20120601, end: 20120601
  2. PROSCAR [Concomitant]
  3. BECONASE [Concomitant]
  4. COLACE [Concomitant]
  5. TIMOLOL MALEATE [Concomitant]
  6. TICE BCG [Suspect]
     Indication: BLADDER CANCER
     Dosage: 1/2 DF, QW
     Route: 043
     Dates: start: 20120621, end: 20120621
  7. TICE BCG [Suspect]
     Dosage: UNK
     Route: 043
     Dates: start: 20120601, end: 20120601
  8. ALLEGRA [Concomitant]
     Dosage: UNK
  9. DOXAZOSIN MESYLATE [Concomitant]
  10. LATANOPROST [Concomitant]
  11. TICE BCG [Suspect]
     Route: 043
     Dates: start: 20120601, end: 20120601
  12. LIPITOR [Concomitant]
  13. CALCIUM CARBONATE [Concomitant]
  14. OXYBUTYNIN [Concomitant]
  15. PROPRANOLOL HYDROCHLORIDE [Concomitant]

REACTIONS (5)
  - URINARY TRACT INFECTION [None]
  - UROSEPSIS [None]
  - LOSS OF CONSCIOUSNESS [None]
  - SEPTIC SHOCK [None]
  - UNDERDOSE [None]
